FAERS Safety Report 7599097-X (Version None)
Quarter: 2011Q3

REPORT INFORMATION
  Report Type: 
  Country: None (occurrence: None)
  Receive Date: 20110711
  Receipt Date: 20110701
  Transmission Date: 20111222
  Serious: Yes (Hospitalization, Other)
  Sender: FDA-Public Use
  Company Number: TW-BAYER-2011-057060

PATIENT
  Age: 77 Year
  Sex: Male

DRUGS (2)
  1. NEXAVAR [Suspect]
     Indication: HEPATIC NEOPLASM MALIGNANT
     Dosage: 400 MG, BID
     Route: 048
  2. NEXAVAR [Suspect]
     Dosage: 200MG

REACTIONS (3)
  - WHITE BLOOD CELL COUNT DECREASED [None]
  - PYREXIA [None]
  - COUGH [None]
